FAERS Safety Report 11126737 (Version 1)
Quarter: 2015Q2

REPORT INFORMATION
  Report Type: Spontaneous
  Country: GB (occurrence: GB)
  Receive Date: 20150520
  Receipt Date: 20150520
  Transmission Date: 20150821
  Serious: Yes (Other)
  Sender: FDA-Public Use
  Company Number: PHHY2015GB057941

PATIENT
  Age: 83 Year
  Sex: Female

DRUGS (2)
  1. SULPHASALAZINE [Concomitant]
     Active Substance: SULFASALAZINE
     Indication: PRODUCT USED FOR UNKNOWN INDICATION
     Dosage: 1 G, UNK
     Route: 065
  2. METHOTREXATE [Suspect]
     Active Substance: METHOTREXATE
     Indication: PRODUCT USED FOR UNKNOWN INDICATION
     Dosage: ON A FRIDAY
     Route: 065

REACTIONS (12)
  - Biliary colic [Unknown]
  - Bone marrow failure [Unknown]
  - Vomiting [Unknown]
  - Lower respiratory tract infection [Unknown]
  - Urinary tract infection [Unknown]
  - Pyrexia [Unknown]
  - Abdominal pain [Unknown]
  - Contraindicated drug administered [Unknown]
  - Liver function test abnormal [Unknown]
  - Sepsis [Unknown]
  - Platelet count decreased [Unknown]
  - Pancytopenia [Unknown]

NARRATIVE: CASE EVENT DATE: 20140627
